FAERS Safety Report 9407701 (Version 9)
Quarter: 2015Q3

REPORT INFORMATION
  Report Type: Spontaneous
  Country: US (occurrence: US)
  Receive Date: 20130718
  Receipt Date: 20150803
  Transmission Date: 20151125
  Serious: Yes (Other)
  Sender: FDA-Public Use
  Company Number: US-PFIZER INC-2013210920

PATIENT
  Age: 70 Year
  Sex: Female
  Weight: 68 kg

DRUGS (8)
  1. LYRICA [Suspect]
     Active Substance: PREGABALIN
     Indication: NEURALGIA
     Dosage: 50 MG, 4X/DAY
     Dates: start: 2013
  2. INDERAL [Concomitant]
     Active Substance: PROPRANOLOL HYDROCHLORIDE
     Dosage: UNK
  3. ATIVAN [Concomitant]
     Active Substance: LORAZEPAM
     Dosage: 1 MG, 1X/DAY (1 MG JUST BED TIME AS NEEDED)
  4. PROPRANOLOL [Concomitant]
     Active Substance: PROPRANOLOL\PROPRANOLOL HYDROCHLORIDE
     Dosage: UNK
  5. LYRICA [Suspect]
     Active Substance: PREGABALIN
     Indication: MIGRAINE
     Dosage: 50 MG, 3X/DAY
  6. DIAZEPAM. [Concomitant]
     Active Substance: DIAZEPAM
     Indication: ESSENTIAL TREMOR
     Dosage: 5 MG, 2X/DAY
  7. TENORMIN [Concomitant]
     Active Substance: ATENOLOL
     Dosage: UNK
  8. PHENOBARBITAL. [Concomitant]
     Active Substance: PHENOBARBITAL
     Dosage: 30 MG, 2X/DAY

REACTIONS (11)
  - Drug withdrawal syndrome [Unknown]
  - Diarrhoea [Unknown]
  - Hypersomnia [Not Recovered/Not Resolved]
  - Vomiting [Unknown]
  - Coma [Unknown]
  - Nausea [Unknown]
  - Condition aggravated [Unknown]
  - Somnolence [Not Recovered/Not Resolved]
  - Headache [Unknown]
  - Feeling abnormal [Unknown]
  - Migraine [Unknown]

NARRATIVE: CASE EVENT DATE: 2013
